FAERS Safety Report 4432494-X (Version None)
Quarter: 2004Q3

REPORT INFORMATION
  Report Type: 
  Country: None (occurrence: None)
  Receive Date: 20040820
  Receipt Date: 20040803
  Transmission Date: 20050211
  Serious: Yes (Death, Life-Threatening, Hospitalization)
  Sender: FDA-Public Use
  Company Number: US_031198859

PATIENT
  Age: 53 Year
  Sex: Male
  Weight: 87 kg

DRUGS (19)
  1. PEMETREXED (LY231514) [Suspect]
     Indication: MESOTHELIOMA
     Dosage: 1050 MG
     Dates: start: 20031016
  2. CISPLATIN [Suspect]
     Indication: MESOTHELIOMA
     Dosage: 157 MG
     Dates: start: 20031016
  3. INDERAL [Concomitant]
  4. AVELOX [Concomitant]
  5. ZYPREXA [Concomitant]
  6. ZOFRAN [Concomitant]
  7. ARANESP [Concomitant]
  8. POTASSIUM CHLORIDE [Concomitant]
  9. DEXAMETHASONE [Concomitant]
  10. MAGNESIUM OXIDE [Concomitant]
  11. TIMOPTIC [Concomitant]
  12. XALATAN [Concomitant]
  13. PERCOCET [Concomitant]
  14. AMBIEN [Concomitant]
  15. ASPIRIN [Concomitant]
  16. KYTRIL [Concomitant]
  17. ANZEMET (DOLASETRON MESILATE) [Concomitant]
  18. VITAMIN B-12 [Concomitant]
  19. FOLIC ACID [Concomitant]

REACTIONS (37)
  - ABDOMINAL PAIN [None]
  - ACIDOSIS [None]
  - AGITATION [None]
  - APNOEA [None]
  - ASPARTATE AMINOTRANSFERASE INCREASED [None]
  - BACK PAIN [None]
  - BASE EXCESS POSITIVE [None]
  - BLOOD ALBUMIN DECREASED [None]
  - BLOOD ALKALINE PHOSPHATASE INCREASED [None]
  - BLOOD BICARBONATE DECREASED [None]
  - BLOOD CREATININE INCREASED [None]
  - BLOOD PH DECREASED [None]
  - BLOOD PRESSURE SYSTOLIC INCREASED [None]
  - BLOOD UREA INCREASED [None]
  - BODY TEMPERATURE DECREASED [None]
  - CLOSTRIDIUM DIFFICILE SEPSIS [None]
  - CONFUSIONAL STATE [None]
  - CYANOSIS [None]
  - DEHYDRATION [None]
  - DIARRHOEA [None]
  - DIARRHOEA HAEMORRHAGIC [None]
  - DIZZINESS [None]
  - GENERAL PHYSICAL HEALTH DETERIORATION [None]
  - HYPERVENTILATION [None]
  - HYPOTENSION [None]
  - LOSS OF CONSCIOUSNESS [None]
  - MALIGNANT NEOPLASM PROGRESSION [None]
  - MESOTHELIOMA MALIGNANT [None]
  - NAUSEA [None]
  - PANCYTOPENIA [None]
  - PCO2 DECREASED [None]
  - PO2 INCREASED [None]
  - PURPURA [None]
  - RASH ERYTHEMATOUS [None]
  - SEPSIS [None]
  - TACHYCARDIA [None]
  - VOMITING [None]
